FAERS Safety Report 12628778 (Version 2)
Quarter: 2017Q4

REPORT INFORMATION
  Report Type: Report from Study
  Country: US (occurrence: US)
  Receive Date: 20160808
  Receipt Date: 20171031
  Transmission Date: 20180320
  Serious: Yes (Hospitalization)
  Sender: FDA-Public Use
  Company Number: US-ROCHE-1408138

PATIENT
  Sex: Male
  Weight: 79 kg

DRUGS (12)
  1. HYDROCORTISONE. [Concomitant]
     Active Substance: HYDROCORTISONE
     Route: 065
  2. NUTROPIN AQ [Suspect]
     Active Substance: SOMATROPIN
     Route: 058
  3. NUTROPIN AQ [Suspect]
     Active Substance: SOMATROPIN
     Route: 058
     Dates: start: 1984
  4. DEPO-TESTOSTERONE [Concomitant]
     Active Substance: TESTOSTERONE CYPIONATE
     Route: 030
  5. DDAVP [Suspect]
     Active Substance: DESMOPRESSIN ACETATE
     Indication: DIABETES INSIPIDUS
     Dosage: 10 MCG
     Route: 045
  6. LEVOTHYROXINE. [Concomitant]
     Active Substance: LEVOTHYROXINE
     Dosage: 125 MCG
     Route: 065
  7. SYNTHROID [Concomitant]
     Active Substance: LEVOTHYROXINE SODIUM
     Route: 048
  8. VENTOLIN HFA [Concomitant]
     Active Substance: ALBUTEROL SULFATE
     Dosage: 1-2 PUFFS
     Route: 048
  9. SYNTHROID [Concomitant]
     Active Substance: LEVOTHYROXINE SODIUM
     Route: 065
  10. NUTROPIN AQ [Suspect]
     Active Substance: SOMATROPIN
     Route: 058
  11. TESTIM [Concomitant]
     Active Substance: TESTOSTERONE
     Route: 065
  12. NUTROPIN AQ [Suspect]
     Active Substance: SOMATROPIN
     Indication: HYPOPITUITARISM
     Route: 058

REACTIONS (19)
  - Gastrointestinal infection [Recovered/Resolved]
  - Peripheral swelling [Unknown]
  - Thirst [Unknown]
  - Cough [Unknown]
  - Hot flush [Unknown]
  - Blood prolactin decreased [Unknown]
  - Blood thyroid stimulating hormone decreased [Unknown]
  - Hyponatraemia [Unknown]
  - Insulin-like growth factor decreased [Unknown]
  - Restlessness [Unknown]
  - Urine output increased [Unknown]
  - Dry skin [Unknown]
  - Decreased appetite [Unknown]
  - Blood testosterone decreased [Unknown]
  - Blood cholesterol increased [Unknown]
  - Dyspepsia [Unknown]
  - Myalgia [Unknown]
  - Drug intolerance [Unknown]
  - Middle insomnia [Unknown]
